FAERS Safety Report 9934599 (Version 1)
Quarter: 2014Q1

REPORT INFORMATION
  Report Type: Spontaneous
  Country: US (occurrence: US)
  Receive Date: 20140228
  Receipt Date: 20140228
  Transmission Date: 20141002
  Serious: No
  Sender: FDA-Public Use
  Company Number: US-ASTRAZENECA-2013SE83559

PATIENT
  Sex: Female

DRUGS (1)
  1. TOPROL [Suspect]
     Dosage: GENERIC
     Route: 065

REACTIONS (2)
  - Hypertension [Unknown]
  - Adverse event [Unknown]
